FAERS Safety Report 9367361 (Version 2)
Quarter: 2013Q3

REPORT INFORMATION
  Report Type: Spontaneous
  Country: FR (occurrence: FR)
  Receive Date: 20130625
  Receipt Date: 20130909
  Transmission Date: 20140515
  Serious: Yes (Death, Hospitalization)
  Sender: FDA-Public Use
  Company Number: FR-TEVA-413887ISR

PATIENT
  Sex: Male

DRUGS (1)
  1. FUROSEMIDE [Suspect]

REACTIONS (2)
  - Death [Fatal]
  - Malaise [Unknown]
